FAERS Safety Report 10597339 (Version 1)
Quarter: 2014Q4

REPORT INFORMATION
  Report Type: Spontaneous
  Country: JP (occurrence: JP)
  Receive Date: 20141121
  Receipt Date: 20141121
  Transmission Date: 20150529
  Serious: Yes (Other)
  Sender: FDA-Public Use
  Company Number: JP-CIPLA LTD.-2014JP02018

PATIENT
  Sex: Female

DRUGS (5)
  1. IRINOTECAN [Suspect]
     Active Substance: IRINOTECAN
     Indication: MALIGNANT PERITONEAL NEOPLASM
     Dosage: 70 MG/M2, ON DAY 1, 8 AND 15 EVERY 28 DAYS
     Route: 042
  2. IRINOTECAN [Suspect]
     Active Substance: IRINOTECAN
     Dosage: 100 MG/M2, ON DAY 1, 8 AND 15 EVERY 28 DAYS
     Route: 042
  3. PEGYLATED LIPOSOMAL DOXORUBICIN [Suspect]
     Active Substance: DOXORUBICIN
     Indication: OVARIAN EPITHELIAL CANCER
     Dosage: 40 MG/M2, ON DAY 1 EVERY 28 DAYS
     Route: 042
  4. IRINOTECAN [Suspect]
     Active Substance: IRINOTECAN
     Indication: OVARIAN EPITHELIAL CANCER
     Dosage: 60 MG/M2, ON DAY 1, 8 AND 15 EVERY 28 DAYS
     Route: 042
  5. PEGYLATED LIPOSOMAL DOXORUBICIN [Suspect]
     Active Substance: DOXORUBICIN
     Indication: MALIGNANT PERITONEAL NEOPLASM
     Dosage: 50 MG/M2, ON DAY 1 EVERY 28 DAYS
     Route: 042

REACTIONS (1)
  - Depression [Unknown]
